FAERS Safety Report 13993405 (Version 2)
Quarter: 2017Q4

REPORT INFORMATION
  Report Type: Spontaneous
  Country: FR (occurrence: FR)
  Receive Date: 20170920
  Receipt Date: 20171122
  Transmission Date: 20180321
  Serious: Yes (Other)
  Sender: FDA-Public Use
  Company Number: FR-IPSEN BIOPHARMACEUTICALS, INC.-2017-10753

PATIENT
  Age: 47 Year
  Sex: Male

DRUGS (3)
  1. SOMATULINE L.P. 120MG [Suspect]
     Active Substance: LANREOTIDE ACETATE
     Indication: ACROMEGALY
     Dosage: 120 MG
     Route: 065
     Dates: start: 2008, end: 20170804
  2. SOMAVERT [Concomitant]
     Active Substance: PEGVISOMANT
  3. LEVOTHYROX [Concomitant]
     Active Substance: LEVOTHYROXINE

REACTIONS (7)
  - Dysphagia [Recovering/Resolving]
  - Swelling face [Recovering/Resolving]
  - Angioedema [Not Recovered/Not Resolved]
  - Oropharyngeal pain [Recovering/Resolving]
  - Rash macular [Recovering/Resolving]
  - Rash [Unknown]
  - Back pain [Recovering/Resolving]

NARRATIVE: CASE EVENT DATE: 2017
